FAERS Safety Report 4762063-3 (Version None)
Quarter: 2005Q3

REPORT INFORMATION
  Report Type: 
  Country: None (occurrence: None)
  Receive Date: 20050831
  Receipt Date: 20050520
  Transmission Date: 20060218
  Serious: No
  Sender: FDA-Public Use
  Company Number: PHEH2005US05794

PATIENT
  Age: 54 Year
  Sex: Female

DRUGS (1)
  1. ENABLEX [Suspect]
     Indication: BLADDER DISORDER
     Dosage: 15 MG, QD
     Dates: start: 20050517

REACTIONS (2)
  - DIZZINESS [None]
  - HEADACHE [None]
